FAERS Safety Report 4493354-1 (Version None)
Quarter: 2004Q4

REPORT INFORMATION
  Report Type: 
  Country: None (occurrence: None)
  Receive Date: 20041102
  Receipt Date: 20041022
  Transmission Date: 20050328
  Serious: Yes (Hospitalization, Other)
  Sender: FDA-Public Use
  Company Number: 14916

PATIENT
  Age: 78 Year
  Sex: Male

DRUGS (1)
  1. LEUCOVORIN CALCIUM FOR INJ. 50 MG - BEN VENUE LABS, INC. [Suspect]
     Indication: COLORECTAL CANCER METASTATIC

REACTIONS (1)
  - INFECTION [None]
